FAERS Safety Report 5196341-3 (Version None)
Quarter: 2007Q1

REPORT INFORMATION
  Report Type: 
  Country: None (occurrence: None)
  Receive Date: 20070102
  Receipt Date: 20061221
  Transmission Date: 20070707
  Serious: Yes (Other)
  Sender: FDA-Public Use
  Company Number: US-PFIZER INC-2006155755

PATIENT
  Sex: Female
  Weight: 57.2 kg

DRUGS (4)
  1. DEPO-PROVERA [Suspect]
     Indication: CONTRACEPTION
     Route: 030
     Dates: start: 20060515, end: 20060515
  2. DEPO-PROVERA [Suspect]
     Route: 030
     Dates: start: 20060810, end: 20060810
  3. ASPIRIN [Concomitant]
  4. TYLENOL [Concomitant]

REACTIONS (4)
  - TRANSIENT ISCHAEMIC ATTACK [None]
  - VISION BLURRED [None]
  - VISUAL DISTURBANCE [None]
  - VISUAL FIELD DEFECT [None]
